FAERS Safety Report 5237674-1 (Version None)
Quarter: 2007Q1

REPORT INFORMATION
  Report Type: 
  Country: None (occurrence: None)
  Receive Date: 20070214
  Receipt Date: 20070201
  Transmission Date: 20070707
  Serious: Yes (Other)
  Sender: FDA-Public Use
  Company Number: DE-ELI_LILLY_AND_COMPANY-DE200701004255

PATIENT
  Age: 84 Year
  Sex: Female

DRUGS (2)
  1. YENTREVE [Suspect]
     Indication: URINARY INCONTINENCE
     Dosage: 20 MG, 2/D
     Route: 048
     Dates: start: 20061219, end: 20070119
  2. TAMOXIFEN CITRATE [Concomitant]
     Dosage: 20 MG, UNK

REACTIONS (2)
  - DIZZINESS [None]
  - FALL [None]
